FAERS Safety Report 15947530 (Version 1)
Quarter: 2019Q1

REPORT INFORMATION
  Report Type: Spontaneous
  Country: US (occurrence: US)
  Receive Date: 20190211
  Receipt Date: 20190211
  Transmission Date: 20190417
  Serious: No
  Sender: FDA-Public Use
  Company Number: US-TARO-2018TAR00097

PATIENT
  Age: 43 Year
  Sex: Female

DRUGS (1)
  1. MICONAZOLE NITRATE VAGINAL CREAM USP 2% 7 DAY CREAM [Suspect]
     Active Substance: MICONAZOLE NITRATE
     Indication: VULVOVAGINAL MYCOTIC INFECTION
     Dosage: 1 DOSAGE UNITS (APPLICATORFUL), 1X/DAY
     Route: 067
     Dates: start: 201801, end: 201802

REACTIONS (4)
  - Underdose [Recovered/Resolved]
  - Application site pain [Recovered/Resolved]
  - Product quality issue [Recovered/Resolved]
  - Incorrect product administration duration [Recovered/Resolved]

NARRATIVE: CASE EVENT DATE: 201801
